FAERS Safety Report 6928707-2 (Version None)
Quarter: 2010Q3

REPORT INFORMATION
  Report Type: 
  Country: None (occurrence: None)
  Receive Date: 20100817
  Receipt Date: 20100813
  Transmission Date: 20110219
  Serious: Yes (Death)
  Sender: FDA-Public Use
  Company Number: A0876187A

PATIENT
  Age: 67 Year
  Sex: Male

DRUGS (1)
  1. PROMACTA [Suspect]
     Indication: GLIOBLASTOMA

REACTIONS (3)
  - GLIOBLASTOMA [None]
  - HAEMATOLOGICAL MALIGNANCY [None]
  - THROMBOCYTOPENIA [None]
